FAERS Safety Report 7715118-5 (Version None)
Quarter: 2011Q3

REPORT INFORMATION
  Report Type: 
  Country: None (occurrence: None)
  Receive Date: 20110829
  Receipt Date: 20110817
  Transmission Date: 20111222
  Serious: No
  Sender: FDA-Public Use
  Company Number: PHHY2011CA70659

PATIENT
  Sex: Female

DRUGS (7)
  1. LYRICA [Concomitant]
  2. WELLBATRIN [Concomitant]
  3. ESRTACE [Concomitant]
  4. EFFECSOR [Concomitant]
  5. LOPRESSOR [Concomitant]
  6. EFFEXOR [Concomitant]
  7. ZOLEDRONOC ACID [Suspect]
     Indication: OSTEOPOROSIS
     Dosage: UNK UKN, UNK
     Route: 042
     Dates: start: 20110719

REACTIONS (4)
  - MIGRAINE [None]
  - PHOTOSENSITIVITY REACTION [None]
  - FATIGUE [None]
  - FIBROMYALGIA [None]
